FAERS Safety Report 6813296-3 (Version None)
Quarter: 2010Q3

REPORT INFORMATION
  Report Type: 
  Country: None (occurrence: None)
  Receive Date: 20100701
  Receipt Date: 20100623
  Transmission Date: 20110219
  Serious: Yes (Other)
  Sender: FDA-Public Use
  Company Number: BR-PFIZER INC-2009311544

PATIENT
  Age: 48 Year
  Sex: Female

DRUGS (8)
  1. CHAMPIX [Suspect]
     Indication: SMOKING CESSATION THERAPY
     Dosage: UNK
     Route: 048
     Dates: start: 20071001
  2. CHAMPIX [Suspect]
     Indication: NICOTINE DEPENDENCE
     Dosage: UNK
     Route: 048
     Dates: start: 20081001
  3. CHAMPIX [Suspect]
     Dosage: UNK
     Route: 048
     Dates: start: 20091008
  4. CHAMPIX [Suspect]
     Dosage: 1 TABLET
     Route: 048
     Dates: start: 20100524
  5. CHAMPIX [Suspect]
     Dosage: UNK
     Dates: start: 20090101
  6. RIVOTRIL [Concomitant]
     Dosage: UNK
     Dates: start: 20040101
  7. CEBRILIN [Concomitant]
     Indication: ANTIDEPRESSANT THERAPY
     Dosage: UNK
     Dates: start: 20040424
  8. PAROXETINE [Concomitant]
     Dosage: UNK
     Dates: start: 20040424

REACTIONS (1)
  - NERVOUSNESS [None]
